FAERS Safety Report 24085650 (Version 1)
Quarter: 2024Q3

REPORT INFORMATION
  Report Type: Spontaneous
  Country: US (occurrence: None)
  Receive Date: 20240712
  Receipt Date: 20240712
  Transmission Date: 20241016
  Serious: Yes (Hospitalization)
  Sender: Public
  Company Number: None

PATIENT
  Age: 62 Year
  Sex: Female
  Weight: 56.2 kg

DRUGS (1)
  1. PAZOPANIB [Suspect]
     Active Substance: PAZOPANIB
     Dates: end: 20240627

REACTIONS (4)
  - Urinary tract obstruction [None]
  - Pelvic mass [None]
  - Hydroureter [None]
  - Nephrotic syndrome [None]

NARRATIVE: CASE EVENT DATE: 20240628
